FAERS Safety Report 7299805-1 (Version None)
Quarter: 2011Q1

REPORT INFORMATION
  Report Type: 
  Country: None (occurrence: None)
  Receive Date: 20110217
  Receipt Date: 20110208
  Transmission Date: 20110831
  Serious: Yes (Hospitalization)
  Sender: FDA-Public Use
  Company Number: SE-ASTRAZENECA-2011SE07301

PATIENT
  Age: 72 Year
  Sex: Male

DRUGS (5)
  1. FELODIPINE [Suspect]
     Indication: ESSENTIAL HYPERTENSION
     Route: 048
     Dates: start: 20101021, end: 20101127
  2. ENALAPRIL [Suspect]
     Indication: ESSENTIAL HYPERTENSION
     Dosage: 20 MG/12.5 MG DAILY
     Route: 048
     Dates: start: 20091022
  3. AMIAS [Suspect]
     Indication: ESSENTIAL HYPERTENSION
     Route: 048
     Dates: start: 20091022
  4. METOPROLOL TARTRATE [Concomitant]
     Indication: HYPERTENSION
     Dates: start: 20091001
  5. NORMORIX [Concomitant]
     Indication: HYPERTENSION
     Dosage: 5 MG/50 MG
     Dates: start: 20100901

REACTIONS (1)
  - LIP SWELLING [None]
